FAERS Safety Report 14238311 (Version 1)
Quarter: 2017Q4

REPORT INFORMATION
  Report Type: Spontaneous
  Country: US (occurrence: None)
  Receive Date: 20171128
  Receipt Date: 20171128
  Transmission Date: 20180321
  Serious: Yes (Death)
  Sender: FDA-Public Use
  Company Number: None

PATIENT
  Age: 64 Year
  Sex: Female

DRUGS (1)
  1. TEMOZOLOMIDE 180MG CAP AMERIGEN PHARMACEUTICALS [Suspect]
     Active Substance: TEMOZOLOMIDE
     Indication: BRAIN NEOPLASM MALIGNANT
     Dosage: TEMOZOLOMIDE 180MG CAP 1 CAP PO FOR 5 DAYS BY MOUTH
     Route: 048
     Dates: start: 20171031, end: 20171105

REACTIONS (1)
  - Death [None]

NARRATIVE: CASE EVENT DATE: 20171108
